FAERS Safety Report 7915125-3 (Version None)
Quarter: 2011Q4

REPORT INFORMATION
  Report Type: 
  Country: None (occurrence: None)
  Receive Date: 20111115
  Receipt Date: 20111103
  Transmission Date: 20120403
  Serious: Yes (Hospitalization)
  Sender: FDA-Public Use
  Company Number: US-ACTELION-A-NJ2011-56612

PATIENT

DRUGS (3)
  1. TRACLEER [Suspect]
     Indication: PULMONARY ARTERIAL HYPERTENSION
     Dosage: UNK
     Route: 048
     Dates: start: 20100208
  2. CALCIUM CHANNEL BLOCKERS [Concomitant]
  3. ADCIRCA [Concomitant]

REACTIONS (2)
  - HEART RATE INCREASED [None]
  - CARDIAC SEPTAL DEFECT REPAIR [None]
